FAERS Safety Report 12385121 (Version 6)
Quarter: 2016Q4

REPORT INFORMATION
  Report Type: Spontaneous
  Country: LB (occurrence: LB)
  Receive Date: 20160519
  Receipt Date: 20161215
  Transmission Date: 20170207
  Serious: Yes (Hospitalization, Disabling)
  Sender: FDA-Public Use
  Company Number: LB-SA-2016SA095144

PATIENT
  Age: 24 Year
  Sex: Female
  Weight: 51 kg

DRUGS (4)
  1. CEREZYME [Suspect]
     Active Substance: IMIGLUCERASE
     Indication: GAUCHER^S DISEASE TYPE I
     Dosage: DOSE: 7 VIALS OF 400 U (HALF DOSE)
     Route: 042
  2. LASIX [Concomitant]
     Active Substance: FUROSEMIDE
     Indication: DIURETIC THERAPY
     Route: 048
  3. CEREZYME [Suspect]
     Active Substance: IMIGLUCERASE
     Indication: GAUCHER^S DISEASE TYPE I
     Dosage: DOSE: 7 VIALS OF 400 U (HALF DOSE)
     Route: 042
  4. ALDACTONE [Concomitant]
     Active Substance: SPIRONOLACTONE
     Indication: DIURETIC THERAPY
     Route: 048

REACTIONS (10)
  - Seizure [Recovered/Resolved]
  - Visual impairment [Not Recovered/Not Resolved]
  - Weight decreased [Unknown]
  - Tremor [Not Recovered/Not Resolved]
  - Blindness [Not Recovered/Not Resolved]
  - Loss of consciousness [Recovered/Resolved]
  - Underdose [Unknown]
  - Hypoacusis [Not Recovered/Not Resolved]
  - Hypokinesia [Unknown]
  - Disease progression [Not Recovered/Not Resolved]

NARRATIVE: CASE EVENT DATE: 2016
